FAERS Safety Report 5227088-2 (Version None)
Quarter: 2007Q1

REPORT INFORMATION
  Report Type: 
  Country: None (occurrence: None)
  Receive Date: 20070201
  Receipt Date: 20070201
  Transmission Date: 20070707
  Serious: Yes (Hospitalization)
  Sender: FDA-Public Use
  Company Number: None

PATIENT
  Age: 39 Year
  Sex: Male

DRUGS (17)
  1. ROSUVASTATIN [Suspect]
     Dosage: 5MG
  2. ACYCLOVIR [Concomitant]
  3. ATAZANAVIR [Concomitant]
  4. ATENOLOL [Concomitant]
  5. DIDANOSINE [Concomitant]
  6. ESCITALOPRAM OXALATE [Concomitant]
  7. FENOFIBRATE [Concomitant]
  8. GABAPENTIN [Concomitant]
  9. HYDROXYZINE [Concomitant]
  10. LAMIVUDINE [Concomitant]
  11. MEPERIDINE HCL [Concomitant]
  12. OMEGA 3 FATTY ACIDS [Concomitant]
  13. QUETIAPINE FUMARATE [Concomitant]
  14. RANITIDINE [Concomitant]
  15. RITONAVIR [Concomitant]
  16. SUMATRIPTAN SUCCINATE [Concomitant]
  17. ZOLPIDEM TARTRATE [Concomitant]

REACTIONS (1)
  - RHABDOMYOLYSIS [None]
